FAERS Safety Report 11415638 (Version 1)
Quarter: 2015Q3

REPORT INFORMATION
  Report Type: Spontaneous
  Country: US (occurrence: None)
  Receive Date: 20150824
  Receipt Date: 20150824
  Transmission Date: 20151125
  Serious: Yes (Other)
  Sender: FDA-Public Use
  Company Number: None

PATIENT
  Age: 32 Year
  Sex: Female
  Weight: 68.04 kg

DRUGS (3)
  1. CEFDINIR 300 MG LUPIN PHARMACEUTICALS [Suspect]
     Active Substance: CEFDINIR
     Indication: TONSILLITIS
     Route: 048
     Dates: start: 20150822, end: 20150823
  2. PREDNISONE. [Concomitant]
     Active Substance: PREDNISONE
  3. PRENATAL VITAMINS [Concomitant]
     Active Substance: VITAMINS

REACTIONS (4)
  - Diarrhoea [None]
  - Urticaria [None]
  - Arthralgia [None]
  - Fatigue [None]

NARRATIVE: CASE EVENT DATE: 20150823
